FAERS Safety Report 7297711-X (Version None)
Quarter: 2011Q1

REPORT INFORMATION
  Report Type: 
  Country: None (occurrence: None)
  Receive Date: 20110217
  Receipt Date: 20110209
  Transmission Date: 20110831
  Serious: Yes (Other)
  Sender: FDA-Public Use
  Company Number: US-ASTRAZENECA-2011SE08017

PATIENT
  Sex: Female
  Weight: 81.6 kg

DRUGS (3)
  1. PAXIL [Concomitant]
     Dates: start: 20000101
  2. SEROQUEL [Suspect]
     Indication: DEPRESSION
     Dosage: 25 MG TO 100 MG
     Route: 048
     Dates: start: 20040607, end: 20060818
  3. SEROQUEL [Suspect]
     Indication: ANXIETY
     Dosage: 25 MG TO 100 MG
     Route: 048
     Dates: start: 20040607, end: 20060818

REACTIONS (3)
  - GALLBLADDER DISORDER [None]
  - TYPE 2 DIABETES MELLITUS [None]
  - ASTHMA [None]
